FAERS Safety Report 4499952-3 (Version None)
Quarter: 2004Q4

REPORT INFORMATION
  Report Type: 
  Country: None (occurrence: None)
  Receive Date: 20041109
  Receipt Date: 20041025
  Transmission Date: 20050328
  Serious: Yes (Hospitalization, Other)
  Sender: FDA-Public Use
  Company Number: 2004S1003177

PATIENT
  Age: 40 Year
  Sex: Male

DRUGS (2)
  1. CLOZAPINE [Suspect]
     Indication: SCHIZOPHRENIA, PARANOID TYPE
     Dosage: 400 - 600 MG QD, ORAL
     Route: 048
     Dates: start: 20010701
  2. FLUVOXAMINE MALEATE [Suspect]

REACTIONS (5)
  - CONDITION AGGRAVATED [None]
  - DRUG EFFECT INCREASED [None]
  - DRUG INTERACTION POTENTIATION [None]
  - PARANOIA [None]
  - SUICIDAL IDEATION [None]
